FAERS Safety Report 10360035 (Version 1)
Quarter: 2014Q3

REPORT INFORMATION
  Report Type: Spontaneous
  Country: US (occurrence: None)
  Receive Date: 20140731
  Receipt Date: 20140731
  Transmission Date: 20150326
  Serious: Yes (Hospitalization)
  Sender: FDA-Public Use
  Company Number: None

PATIENT
  Age: 57 Year
  Sex: Male
  Weight: 64.2 kg

DRUGS (6)
  1. VELCADE [Suspect]
     Active Substance: BORTEZOMIB
  2. ALLOPURINOL. [Concomitant]
     Active Substance: ALLOPURINOL
  3. BENDAMUSTINE HYDROCHLORIDE [Suspect]
     Active Substance: BENDAMUSTINE HYDROCHLORIDE
  4. OXYCODONE [Concomitant]
     Active Substance: OXYCODONE
  5. RITUXIMAB [Suspect]
     Active Substance: RITUXIMAB
  6. FENTANYL. [Concomitant]
     Active Substance: FENTANYL

REACTIONS (6)
  - Arthritis bacterial [None]
  - Arthralgia [None]
  - Erythema [None]
  - Joint swelling [None]
  - Cellulitis [None]
  - Tumour lysis syndrome [None]

NARRATIVE: CASE EVENT DATE: 20140730
